FAERS Safety Report 5530056-4 (Version None)
Quarter: 2007Q4

REPORT INFORMATION
  Report Type: 
  Country: None (occurrence: None)
  Receive Date: 20071107
  Receipt Date: 20071026
  Transmission Date: 20080405
  Serious: Yes (Hospitalization)
  Sender: FDA-Public Use
  Company Number: WSDF_00677

PATIENT
  Age: 62 Year
  Sex: Male
  Weight: 130.8627 kg

DRUGS (17)
  1. WINRHO SDF [Suspect]
     Indication: IDIOPATHIC THROMBOCYTOPENIC PURPURA
     Dosage: 75 ?G/KG ONCE IV
     Route: 042
     Dates: start: 20070912, end: 20070912
  2. ASPIRIN [Concomitant]
  3. CARAFATE [Concomitant]
  4. CARDIZEM [Concomitant]
  5. DESYREL [Concomitant]
  6. ACETAMINOPHEN AND OXYCODONE HCL [Concomitant]
  7. FLEXERIL [Concomitant]
  8. GLIPIZIDE [Concomitant]
  9. INSULIN [Concomitant]
  10. PEPCID [Concomitant]
  11. PHENERGAN CREAM /OLD FORM/ [Concomitant]
  12. SONATA [Concomitant]
  13. STARLIX [Concomitant]
  14. STOOL SOFTENER [Concomitant]
  15. SULAR [Concomitant]
  16. TYLENOL [Concomitant]
  17. BENADRYL [Concomitant]

REACTIONS (11)
  - ABDOMINAL PAIN [None]
  - ACUTE STRESS DISORDER [None]
  - ASPARTATE AMINOTRANSFERASE INCREASED [None]
  - BLOOD BILIRUBIN INCREASED [None]
  - BLOOD GLUCOSE INCREASED [None]
  - DRUG HYPERSENSITIVITY [None]
  - HAEMOLYSIS [None]
  - MYALGIA [None]
  - MYOGLOBINURIA [None]
  - PAIN IN EXTREMITY [None]
  - THROMBOCYTOPENIA [None]
